FAERS Safety Report 8916136 (Version 1)
Quarter: 2012Q4

REPORT INFORMATION
  Report Type: 
  Country: VE (occurrence: VE)
  Receive Date: 20121120
  Receipt Date: 20121120
  Transmission Date: 20130627
  Serious: Yes (Hospitalization, Other)
  Sender: FDA-Public Use
  Company Number: VE-ELI_LILLY_AND_COMPANY-VE201208001324

PATIENT
  Age: 34 Year
  Sex: Female

DRUGS (6)
  1. HUMALOG 25% LISPRO, 75% NPL [Suspect]
     Indication: GESTATIONAL DIABETES
     Dosage: 14 IU, bid
     Dates: start: 20120802, end: 20121022
  2. AMLODIPINE [Concomitant]
  3. ALDOMET [Concomitant]
     Indication: BLOOD PRESSURE ABNORMAL
     Dosage: 250 mg, UNK
     Dates: start: 201207
  4. METFOR [Concomitant]
     Indication: GESTATIONAL DIABETES
     Dosage: 500 mg, bid
     Dates: start: 2012
  5. PRENATAL VITAMINS                  /01549301/ [Concomitant]
     Dosage: UNK
     Dates: start: 201201
  6. NORVAS [Concomitant]
     Dosage: UNK
     Dates: start: 201207

REACTIONS (4)
  - Hyperglycaemia [Not Recovered/Not Resolved]
  - Hypertension [Unknown]
  - Blood bilirubin increased [Unknown]
  - Exposure during pregnancy [Not Recovered/Not Resolved]
